FAERS Safety Report 4400937-3 (Version None)
Quarter: 2004Q3

REPORT INFORMATION
  Report Type: 
  Country: None (occurrence: None)
  Receive Date: 20040907
  Receipt Date: 20030819
  Transmission Date: 20050211
  Serious: No
  Sender: FDA-Public Use
  Company Number: US-BRISTOL-MYERS SQUIBB COMPANY-12359147

PATIENT
  Age: 46 Year
  Sex: Male
  Weight: 46 kg

DRUGS (9)
  1. COUMADIN [Suspect]
     Indication: CEREBROVASCULAR ACCIDENT
     Route: 048
     Dates: start: 20030807
  2. TENORMIN [Concomitant]
  3. LANOXIN [Concomitant]
  4. PEPCID [Concomitant]
  5. ALDACTONE [Concomitant]
  6. TYLENOL [Concomitant]
  7. CATAPRES [Concomitant]
     Indication: BLOOD PRESSURE INCREASED
  8. AMBIEN [Concomitant]
  9. LASIX [Concomitant]

REACTIONS (1)
  - INTERNATIONAL NORMALISED RATIO DECREASED [None]
